FAERS Safety Report 9114779 (Version 1)
Quarter: 2013Q1

REPORT INFORMATION
  Report Type: Spontaneous
  Country: CO (occurrence: CO)
  Receive Date: 20130208
  Receipt Date: 20130208
  Transmission Date: 20140127
  Serious: Yes (Other)
  Sender: FDA-Public Use
  Company Number: CO-JNJFOC-20130201087

PATIENT
  Age: 80 Year
  Sex: Female

DRUGS (1)
  1. REMINYL ER [Suspect]
     Indication: DEMENTIA
     Route: 048
     Dates: start: 20110510, end: 20120606

REACTIONS (4)
  - Depression [Unknown]
  - Delusion [Unknown]
  - Amnesia [Unknown]
  - Drug ineffective [Unknown]
